FAERS Safety Report 10376459 (Version 2)
Quarter: 2014Q3

REPORT INFORMATION
  Report Type: Spontaneous
  Country: US (occurrence: US)
  Receive Date: 20140811
  Receipt Date: 20140828
  Transmission Date: 20150326
  Serious: Yes (Hospitalization, Other)
  Sender: FDA-Public Use
  Company Number: US-PFIZER INC-2014221072

PATIENT
  Age: 76 Year
  Sex: Female
  Weight: 63.95 kg

DRUGS (2)
  1. LYRICA [Suspect]
     Active Substance: PREGABALIN
     Indication: NEUROPATHY PERIPHERAL
     Dosage: 75 MG, DAILY
     Dates: start: 2010
  2. SAVELLA [Suspect]
     Active Substance: MILNACIPRAN HYDROCHLORIDE
     Dosage: 50 MG, 2X/DAY

REACTIONS (13)
  - Arthropathy [Unknown]
  - Limb discomfort [Unknown]
  - Tremor [Unknown]
  - Insomnia [Unknown]
  - Arthropathy [Unknown]
  - Blood pressure increased [Unknown]
  - Weight increased [Unknown]
  - Dysstasia [Unknown]
  - Arthropathy [Unknown]
  - Local swelling [Unknown]
  - Gait disturbance [Unknown]
  - Pain [Unknown]
  - Drug ineffective [Unknown]

NARRATIVE: CASE EVENT DATE: 2013
